FAERS Safety Report 8446385 (Version 2)
Quarter: 2012Q4

REPORT INFORMATION
  Report Type: 
  Country: US (occurrence: US)
  Receive Date: 20120307
  Receipt Date: 20120924
  Transmission Date: 20130627
  Serious: Yes (Other)
  Sender: FDA-Public Use
  Company Number: US-PFIZER INC-2012056743

PATIENT
  Sex: Female

DRUGS (1)
  1. LYRICA [Suspect]
     Dosage: UNK
     Dates: start: 20120111

REACTIONS (4)
  - Brain injury [Unknown]
  - Hyperhidrosis [Unknown]
  - Nausea [Unknown]
  - Skin injury [Unknown]
